FAERS Safety Report 6920076-7 (Version None)
Quarter: 2010Q3

REPORT INFORMATION
  Report Type: 
  Country: None (occurrence: None)
  Receive Date: 20100730
  Receipt Date: 20091215
  Transmission Date: 20110219
  Serious: Yes (Life-Threatening)
  Sender: FDA-Public Use
  Company Number: OMPQ-PR-0911S-0944

PATIENT
  Age: 82 Year
  Sex: Male
  Weight: 71.6683 kg

DRUGS (3)
  1. OMNIPAQUE 140 [Suspect]
     Indication: PRODUCT USED FOR UNKNOWN INDICATION
     Dosage: 8 ML, SINGLE DOSE, CORONARY
     Dates: start: 20091116, end: 20091116
  2. MIDAZOLAM HCL [Concomitant]
  3. FENTANYL CITRATE [Concomitant]

REACTIONS (2)
  - BLOOD PRESSURE DECREASED [None]
  - CARDIAC ARREST [None]
